FAERS Safety Report 17121970 (Version 1)
Quarter: 2019Q4

REPORT INFORMATION
  Report Type: Spontaneous
  Country: US (occurrence: US)
  Receive Date: 20191206
  Receipt Date: 20191206
  Transmission Date: 20200122
  Serious: No
  Sender: FDA-Public Use
  Company Number: US-PFIZER INC-2019525578

PATIENT
  Age: 61 Year
  Sex: Male

DRUGS (1)
  1. EUCRISA [Suspect]
     Active Substance: CRISABOROLE
     Indication: IDIOPATHIC URTICARIA
     Dosage: UNK

REACTIONS (3)
  - Burning sensation [Unknown]
  - Off label use [Unknown]
  - Product use in unapproved indication [Unknown]
